FAERS Safety Report 4274729-2 (Version None)
Quarter: 2004Q1

REPORT INFORMATION
  Report Type: 
  Country: None (occurrence: None)
  Receive Date: 20040115
  Receipt Date: 20031225
  Transmission Date: 20041129
  Serious: Yes (Death, Life-Threatening)
  Sender: FDA-Public Use
  Company Number: JP_031202380

PATIENT
  Age: 43 Year
  Sex: Male

DRUGS (7)
  1. ZYPREXA [Suspect]
     Indication: SCHIZOPHRENIA
     Dosage: 25 MG/DAY
     Dates: start: 20030926, end: 20031208
  2. RISPERDAL [Concomitant]
  3. SERENACE (HALOPRIDOL) [Concomitant]
  4. CHLORPROMAZINE HCL [Concomitant]
  5. AKINETON [Concomitant]
  6. ROHYPNOL (FLUNITRAZEPAM) [Concomitant]
  7. VEGETAMIN B [Concomitant]

REACTIONS (6)
  - COMA [None]
  - HYPERGLYCAEMIA [None]
  - HYPERVENTILATION [None]
  - METABOLIC ACIDOSIS [None]
  - NEUROLEPTIC MALIGNANT SYNDROME [None]
  - RHABDOMYOLYSIS [None]
